FAERS Safety Report 9702514 (Version 3)
Quarter: 2014Q2

REPORT INFORMATION
  Report Type: Report from Study
  Country: US (occurrence: US)
  Receive Date: 20131121
  Receipt Date: 20140423
  Transmission Date: 20141212
  Serious: Yes (Hospitalization, Other)
  Sender: FDA-Public Use
  Company Number: US-ABBVIE-13P-163-1169129-00

PATIENT
  Age: 49 Year
  Sex: Female
  Weight: 59.02 kg

DRUGS (2)
  1. HUMIRA [Suspect]
     Indication: CROHN^S DISEASE
     Route: 058
  2. CYMBALTA [Concomitant]
     Indication: PRODUCT USED FOR UNKNOWN INDICATION

REACTIONS (11)
  - Large intestinal stenosis [Recovered/Resolved]
  - Diarrhoea [Recovered/Resolved]
  - Constipation [Not Recovered/Not Resolved]
  - Pain [Not Recovered/Not Resolved]
  - Weight decreased [Unknown]
  - Drug ineffective [Recovered/Resolved]
  - Crohn^s disease [Not Recovered/Not Resolved]
  - Drug effect delayed [Unknown]
  - Nasopharyngitis [Not Recovered/Not Resolved]
  - Nasal congestion [Not Recovered/Not Resolved]
  - Oropharyngeal pain [Not Recovered/Not Resolved]
